FAERS Safety Report 20674996 (Version 6)
Quarter: 2022Q2

REPORT INFORMATION
  Report Type: Report from Study
  Country: US (occurrence: US)
  Receive Date: 20220405
  Receipt Date: 20220608
  Transmission Date: 20220720
  Serious: No
  Sender: FDA-Public Use
  Company Number: US-NOVARTISTESTPH-NVSC2022US076475

PATIENT
  Age: 63 Year
  Sex: Female

DRUGS (2)
  1. ENTRESTO [Suspect]
     Active Substance: SACUBITRIL\VALSARTAN
     Indication: Cardiac failure
     Dosage: UNK UNK, BID
     Route: 048
     Dates: start: 202102
  2. ENTRESTO [Suspect]
     Active Substance: SACUBITRIL\VALSARTAN
     Dosage: 100 MG, BID (4/51 MG)
     Route: 048

REACTIONS (8)
  - Dyspnoea [Unknown]
  - Fluid retention [Recovering/Resolving]
  - Weight increased [Recovering/Resolving]
  - Peripheral swelling [Recovered/Resolved]
  - Fatigue [Not Recovered/Not Resolved]
  - Insomnia [Unknown]
  - Asthenia [Unknown]
  - Dizziness postural [Unknown]

NARRATIVE: CASE EVENT DATE: 20220101
